FAERS Safety Report 24862339 (Version 2)
Quarter: 2025Q1

REPORT INFORMATION
  Report Type: Spontaneous
  Country: US (occurrence: US)
  Receive Date: 20250120
  Receipt Date: 20250206
  Transmission Date: 20250409
  Serious: No
  Sender: PFIZER
  Company Number: US-PFIZER INC-202400327476

PATIENT
  Age: 71 Year
  Sex: Female
  Weight: 81.633 kg

DRUGS (4)
  1. VELSIPITY [Suspect]
     Active Substance: ETRASIMOD ARGININE
     Indication: Colitis ulcerative
     Dosage: 2 MG, 1X/DAY
     Route: 048
     Dates: start: 20250116, end: 202501
  2. VELSIPITY [Suspect]
     Active Substance: ETRASIMOD ARGININE
     Indication: Proctitis ulcerative
     Dates: start: 2025
  3. HYDROCHLOROTHIAZIDE\VALSARTAN [Concomitant]
     Active Substance: HYDROCHLOROTHIAZIDE\VALSARTAN
     Indication: Hypertension
  4. VITAMIN D3 [Concomitant]
     Active Substance: CHOLECALCIFEROL

REACTIONS (1)
  - Dysgeusia [Unknown]
